FAERS Safety Report 8374354-8 (Version None)
Quarter: 2012Q2

REPORT INFORMATION
  Report Type: 
  Country: None (occurrence: None)
  Receive Date: 20120521
  Receipt Date: 20120516
  Transmission Date: 20120825
  Serious: Yes (Death)
  Sender: FDA-Public Use
  Company Number: DE-BRISTOL-MYERS SQUIBB COMPANY-16597346

PATIENT

DRUGS (1)
  1. IPILIMUMAB [Suspect]
     Dosage: INFUSION

REACTIONS (1)
  - DEATH [None]
